FAERS Safety Report 17311519 (Version 1)
Quarter: 2020Q1

REPORT INFORMATION
  Report Type: Spontaneous
  Country: US (occurrence: US)
  Receive Date: 20200123
  Receipt Date: 20200123
  Transmission Date: 20200409
  Serious: Yes (Hospitalization)
  Sender: FDA-Public Use
  Company Number: US-ROCHE-2240918

PATIENT
  Age: 27 Year
  Sex: Male

DRUGS (7)
  1. FOSCARNET [Concomitant]
     Active Substance: FOSCARNET
  2. RITUXIMAB. [Suspect]
     Active Substance: RITUXIMAB
     Indication: MILLER FISHER SYNDROME
     Route: 042
  3. IVIG [Concomitant]
     Active Substance: HUMAN IMMUNOGLOBULIN G
     Route: 042
  4. RITUXIMAB. [Suspect]
     Active Substance: RITUXIMAB
     Indication: MYASTHENIA GRAVIS
  5. PYRIDOSTIGMINE [Concomitant]
     Active Substance: PYRIDOSTIGMINE
  6. VALGANCICLOVIR. [Concomitant]
     Active Substance: VALGANCICLOVIR
     Indication: CYTOMEGALOVIRUS VIRAEMIA
     Route: 042
  7. ALL OTHER NON-THERAPEUTIC PRODUCTS [Concomitant]
     Active Substance: UNSPECIFIED INGREDIENT

REACTIONS (3)
  - Infusion related reaction [Unknown]
  - Bacterial toxaemia [Unknown]
  - Botulism [Unknown]
